FAERS Safety Report 7272396-7 (Version None)
Quarter: 2011Q1

REPORT INFORMATION
  Report Type: 
  Country: None (occurrence: None)
  Receive Date: 20110203
  Receipt Date: 20101227
  Transmission Date: 20110831
  Serious: Yes (Hospitalization, Other)
  Sender: FDA-Public Use
  Company Number: US-BAYER-201011569NA

PATIENT
  Sex: Female

DRUGS (1)
  1. YASMIN [Suspect]
     Indication: PRODUCT USED FOR UNKNOWN INDICATION
     Route: 048

REACTIONS (10)
  - PAIN [None]
  - MYOCARDIAL INFARCTION [None]
  - RESPIRATION ABNORMAL [None]
  - CARDIAC ARREST [None]
  - UNEVALUABLE EVENT [None]
  - PULSE ABSENT [None]
  - RESPIRATORY ARREST [None]
  - ARRHYTHMIA [None]
  - ACUTE RESPIRATORY FAILURE [None]
  - CARDIAC DISORDER [None]
